FAERS Safety Report 8781801 (Version 6)
Quarter: 2013Q3

REPORT INFORMATION
  Report Type: Report from Study
  Country: NL (occurrence: NL)
  Receive Date: 20120913
  Receipt Date: 20130806
  Transmission Date: 20140515
  Serious: Yes (Life-Threatening, Hospitalization, Disabling, Other)
  Sender: FDA-Public Use
  Company Number: NL-GENZYME-CLOF-1002292

PATIENT
  Age: 43 Year
  Sex: Female
  Weight: 84 kg

DRUGS (4)
  1. EVOLTRA [Suspect]
     Indication: ACUTE MYELOID LEUKAEMIA
     Dosage: 21 MG, QOD (1/ 2 DAYS)
     Route: 042
     Dates: start: 20120208, end: 20120216
  2. EVOLTRA [Suspect]
     Dosage: UNK (CONSOLIDATION THERAPY)
     Route: 065
     Dates: start: 2012
  3. CYTARABINE [Suspect]
     Indication: ACUTE MYELOID LEUKAEMIA
     Dosage: 1000 MG, QD
     Route: 042
     Dates: start: 20120320, end: 20120325
  4. ZAVEDOS [Suspect]
     Indication: ACUTE MYELOID LEUKAEMIA
     Dosage: 20 MG, (ONE IN TWO DAYS)
     Route: 042
     Dates: start: 20120323, end: 20120325

REACTIONS (7)
  - Pancytopenia [Recovered/Resolved]
  - Pneumonia [Recovered/Resolved with Sequelae]
  - Hypoxia [Recovered/Resolved]
  - Bone marrow failure [Unknown]
  - Streptococcal infection [Unknown]
  - Enterococcal infection [Unknown]
  - Polyneuropathy [Unknown]
